FAERS Safety Report 4533018-9 (Version None)
Quarter: 2004Q4

REPORT INFORMATION
  Report Type: 
  Country: None (occurrence: None)
  Receive Date: 20041221
  Receipt Date: 20041217
  Transmission Date: 20050328
  Serious: Yes (Death)
  Sender: FDA-Public Use
  Company Number: US-BRISTOL-MYERS SQUIBB COMPANY-12799466

PATIENT
  Age: 63 Year
  Sex: Female

DRUGS (1)
  1. ENKAID [Suspect]
     Dates: end: 20041101

REACTIONS (1)
  - CEREBROVASCULAR ACCIDENT [None]
